FAERS Safety Report 22027971 (Version 2)
Quarter: 2023Q1

REPORT INFORMATION
  Report Type: Spontaneous
  Country: US (occurrence: US)
  Receive Date: 20230223
  Receipt Date: 20230303
  Transmission Date: 20230418
  Serious: Yes (Other)
  Sender: FDA-Public Use
  Company Number: US-KYOWAKIRIN-2023BKK002756

PATIENT

DRUGS (2)
  1. CRYSVITA [Suspect]
     Active Substance: BUROSUMAB-TWZA
     Indication: Hereditary hypophosphataemic rickets
     Dosage: 70 MG (TWICE A MONTH)
     Route: 065
  2. ETIDRONATE DISODIUM [Concomitant]
     Active Substance: ETIDRONATE DISODIUM
     Indication: Product used for unknown indication
     Dosage: UNK
     Route: 065

REACTIONS (7)
  - Aortic stenosis [Unknown]
  - Left ventricle outflow tract obstruction [Unknown]
  - Ventricular septal defect [Unknown]
  - Aortic valve calcification [Unknown]
  - Myocardial calcification [Unknown]
  - Papillary muscle disorder [Unknown]
  - Off label use [Unknown]
